FAERS Safety Report 15614792 (Version 1)
Quarter: 2018Q4

REPORT INFORMATION
  Report Type: Spontaneous
  Country: US (occurrence: US)
  Receive Date: 20181113
  Receipt Date: 20181113
  Transmission Date: 20190205
  Serious: Yes (Other)
  Sender: FDA-Public Use
  Company Number: US-ACCORD-091712

PATIENT
  Sex: Female
  Weight: 37.65 kg

DRUGS (2)
  1. SPIRONOLACTONE. [Suspect]
     Active Substance: SPIRONOLACTONE
     Indication: HYPERTENSION
     Route: 048
     Dates: start: 201804, end: 201805
  2. HYDROCHLOROTHIAZIDE ACCORD [Suspect]
     Active Substance: HYDROCHLOROTHIAZIDE
     Indication: HYPERTENSION
     Dosage: STRENGTH:12.5 MG
     Route: 048
     Dates: start: 201804, end: 201805

REACTIONS (6)
  - Limb injury [Unknown]
  - Dizziness [Unknown]
  - Fall [Unknown]
  - Malaise [Unknown]
  - Feeling abnormal [Unknown]
  - Recalled product administered [Unknown]
